FAERS Safety Report 11940846 (Version 2)
Quarter: 2016Q1

REPORT INFORMATION
  Report Type: Spontaneous
  Country: RS (occurrence: RS)
  Receive Date: 20160122
  Receipt Date: 20160216
  Transmission Date: 20160526
  Serious: Yes (Other)
  Sender: FDA-Public Use
  Company Number: RS-NOVOPROD-477400

PATIENT
  Age: 36 Year
  Sex: Female
  Weight: 86 kg

DRUGS (5)
  1. INSULATARD NPH HUMAN [Suspect]
     Active Substance: INSULIN HUMAN
     Indication: TYPE 1 DIABETES MELLITUS
     Dosage: 30 IU, QD
     Route: 058
     Dates: start: 20150116
  2. LEVEMIR [Suspect]
     Active Substance: INSULIN DETEMIR
     Indication: TYPE 1 DIABETES MELLITUS
     Dosage: 30 U, QD
     Route: 058
     Dates: end: 20150115
  3. NOVORAPID [Suspect]
     Active Substance: INSULIN ASPART
     Indication: TYPE 1 DIABETES MELLITUS
     Dosage: 22 U, QD (8+6+8)
     Route: 058
     Dates: end: 20150115
  4. ACTRAPID [Suspect]
     Active Substance: INSULIN HUMAN
     Indication: TYPE 1 DIABETES MELLITUS
     Dosage: 28 IU, QD (10+8+10)
     Route: 058
     Dates: start: 20150116
  5. INSULATARD NPH HUMAN [Suspect]
     Active Substance: INSULIN HUMAN
     Dosage: 32 IU, QD (AT 22H)
     Route: 058
     Dates: start: 20150116

REACTIONS (3)
  - Blood glucose increased [Unknown]
  - Abortion induced [Unknown]
  - Exposure during pregnancy [Recovered/Resolved]
